FAERS Safety Report 6690692-9 (Version None)
Quarter: 2010Q2

REPORT INFORMATION
  Report Type: 
  Country: None (occurrence: None)
  Receive Date: 20100420
  Receipt Date: 20100420
  Transmission Date: 20101027
  Serious: Yes (Hospitalization)
  Sender: FDA-Public Use
  Company Number: None

PATIENT
  Age: 65 Year
  Sex: Male
  Weight: 92.8 kg

DRUGS (2)
  1. HYDROCHLOROTHIAZIDE [Suspect]
     Indication: HYPERTENSION
     Dosage: 25 MG AM PO
     Route: 048
     Dates: start: 20081014, end: 20100412
  2. TERAZOSIN HCL [Suspect]
     Indication: HYPERTENSION
     Dosage: 5 MG HS PO
     Route: 048
     Dates: start: 20100112, end: 20100412

REACTIONS (2)
  - NONSPECIFIC REACTION [None]
  - SYNCOPE [None]
